FAERS Safety Report 6142057-6 (Version None)
Quarter: 2009Q2

REPORT INFORMATION
  Report Type: 
  Country: None (occurrence: None)
  Receive Date: 20090402
  Receipt Date: 20090325
  Transmission Date: 20091009
  Serious: Yes (Hospitalization)
  Sender: FDA-Public Use
  Company Number: US-BAXTER-2009BH000175

PATIENT
  Age: 42 Year
  Sex: Female

DRUGS (2)
  1. DIANEAL [Suspect]
     Indication: PERITONEAL DIALYSIS
     Route: 033
     Dates: end: 20081201
  2. DIANEAL [Suspect]
     Route: 033
     Dates: start: 20081231

REACTIONS (2)
  - CATHETER RELATED COMPLICATION [None]
  - GASTROINTESTINAL OEDEMA [None]
